FAERS Safety Report 24428610 (Version 1)
Quarter: 2024Q4

REPORT INFORMATION
  Report Type: Spontaneous
  Country: TN (occurrence: TN)
  Receive Date: 20241011
  Receipt Date: 20241011
  Transmission Date: 20250115
  Serious: Yes (Death, Life-Threatening, Other)
  Sender: AMGEN
  Company Number: TN-AMGEN-TUNSP2024199271

PATIENT
  Age: 21 Year
  Sex: Female

DRUGS (1)
  1. XGEVA [Suspect]
     Active Substance: DENOSUMAB
     Indication: Bone giant cell tumour
     Dosage: UNK
     Route: 065

REACTIONS (5)
  - Death [Fatal]
  - Respiratory distress [Unknown]
  - Pulmonary embolism [Unknown]
  - Bone giant cell tumour [Unknown]
  - Quadriplegia [Unknown]
